FAERS Safety Report 7346235-X (Version None)
Quarter: 2011Q1

REPORT INFORMATION
  Report Type: 
  Country: None (occurrence: None)
  Receive Date: 20110311
  Receipt Date: 20110302
  Transmission Date: 20110831
  Serious: No
  Sender: FDA-Public Use
  Company Number: US-PFIZER INC-2011046951

PATIENT
  Age: 98 Year
  Sex: Male

DRUGS (1)
  1. CLEOCIN [Suspect]
     Dosage: UNK

REACTIONS (1)
  - DYSPHAGIA [None]
